FAERS Safety Report 6390948-3 (Version None)
Quarter: 2009Q4

REPORT INFORMATION
  Report Type: 
  Country: None (occurrence: None)
  Receive Date: 20091001
  Receipt Date: 20090619
  Transmission Date: 20100525
  Serious: No
  Sender: FDA-Public Use
  Company Number: 1000006967

PATIENT
  Age: 77 Year
  Sex: Female

DRUGS (3)
  1. BYSTOLIC [Suspect]
     Indication: HYPERTENSION
     Dosage: 5 MG ) 5 MG, 1 IN 1 D), ORAL
     Route: 048
     Dates: start: 20090616, end: 20090617
  2. AVAPRO [Concomitant]
  3. PRAVASTATIN [Concomitant]

REACTIONS (2)
  - DRY MOUTH [None]
  - LETHARGY [None]
